FAERS Safety Report 8142470-1 (Version None)
Quarter: 2012Q1

REPORT INFORMATION
  Report Type: 
  Country: None (occurrence: None)
  Receive Date: 20120216
  Receipt Date: 20120206
  Transmission Date: 20120608
  Serious: Yes (Hospitalization, Other)
  Sender: FDA-Public Use
  Company Number: GB-ABBOTT-11P-167-0851328-00

PATIENT
  Age: 14 Year
  Sex: Female

DRUGS (3)
  1. LAMOTRIGINE [Concomitant]
     Indication: PRODUCT USED FOR UNKNOWN INDICATION
  2. VALPROIC ACID [Suspect]
     Indication: EPILEPSY
     Dosage: 350MG DAILY
     Dates: end: 20101001
  3. VALPROIC ACID [Suspect]
     Dosage: 500MG DAILY, TWICE A DAY
     Dates: start: 20101001

REACTIONS (13)
  - PRURITUS [None]
  - DIPLOPIA [None]
  - INFLUENZA [None]
  - MOOD SWINGS [None]
  - EPILEPTIC AURA [None]
  - AGGRESSION [None]
  - DEPRESSION [None]
  - DIARRHOEA [None]
  - STATUS EPILEPTICUS [None]
  - VISUAL IMPAIRMENT [None]
  - ABNORMAL BEHAVIOUR [None]
  - ABDOMINAL PAIN [None]
  - MIGRAINE [None]
